FAERS Safety Report 14432501 (Version 1)
Quarter: 2018Q1

REPORT INFORMATION
  Report Type: Spontaneous
  Country: JP (occurrence: JP)
  Receive Date: 20180124
  Receipt Date: 20180124
  Transmission Date: 20180509
  Serious: Yes (Other)
  Sender: FDA-Public Use
  Company Number: JP-JNJFOC-20180123978

PATIENT
  Sex: Female

DRUGS (7)
  1. SEPAZON [Concomitant]
     Active Substance: CLOXAZOLAM
     Route: 048
  2. LEVOTOMIN [Concomitant]
     Active Substance: LEVOMEPROMAZINE
     Route: 048
  3. LULLAN [Concomitant]
     Active Substance: PEROSPIRONE HYDROCHLORIDE
     Route: 048
  4. RISPERDAL [Suspect]
     Active Substance: RISPERIDONE
     Indication: DEPRESSION
     Route: 048
  5. LEXOTAN [Concomitant]
     Active Substance: BROMAZEPAM
     Route: 048
  6. DEPAKENE [Suspect]
     Active Substance: VALPROIC ACID
     Indication: PRODUCT USED FOR UNKNOWN INDICATION
     Route: 048
  7. RISPERDAL [Suspect]
     Active Substance: RISPERIDONE
     Indication: DEPRESSION
     Dosage: THRICE DAILY AT 5-HOUR INTERVAL
     Route: 048

REACTIONS (6)
  - Adverse reaction [Unknown]
  - Drug prescribing error [Unknown]
  - Suicidal ideation [Unknown]
  - Weight increased [Unknown]
  - Product use in unapproved indication [Unknown]
  - Off label use [Unknown]
